FAERS Safety Report 7644562-X (Version None)
Quarter: 2011Q3

REPORT INFORMATION
  Report Type: 
  Country: None (occurrence: None)
  Receive Date: 20110729
  Receipt Date: 20110725
  Transmission Date: 20111222
  Serious: Yes (Other)
  Sender: FDA-Public Use
  Company Number: FR-PFIZER INC-2011167919

PATIENT
  Age: 59 Year
  Sex: Male

DRUGS (6)
  1. LYRICA [Concomitant]
     Dosage: UNK
     Dates: start: 20101201
  2. STRUCTUM [Concomitant]
     Dosage: UNK
  3. OROCAL VITAMIN D [Concomitant]
     Dosage: UNK
     Dates: start: 20101001
  4. ATORVASTATIN CALCIUM [Suspect]
     Indication: HYPERCHOLESTEROLAEMIA
     Dosage: UNK
     Route: 048
     Dates: end: 20110502
  5. PREDNISONE [Concomitant]
     Dosage: UNK
     Dates: start: 20100601
  6. TAMSULOSIN HCL [Concomitant]
     Dosage: UNK

REACTIONS (4)
  - ARTHRALGIA [None]
  - MYALGIA [None]
  - INTERSTITIAL LUNG DISEASE [None]
  - IMMUNOLOGY TEST ABNORMAL [None]
